FAERS Safety Report 9006389 (Version 1)
Quarter: 2012Q4

REPORT INFORMATION
  Report Type: Spontaneous
  Country: IT (occurrence: None)
  Receive Date: 20121227
  Receipt Date: 20121227
  Transmission Date: 20130627
  Serious: Yes (Other)
  Sender: FDA-Public Use
  Company Number: 2012-22180

PATIENT
  Age: 71 Year
  Sex: Male

DRUGS (1)
  1. RAMIPRIL (RAMIPRIL) [Suspect]
     Indication: ESSENTIAL HYPERTENSION
     Dates: start: 20121030

REACTIONS (2)
  - Hypertensive crisis [None]
  - Epistaxis [None]
